FAERS Safety Report 6781387-1 (Version None)
Quarter: 2010Q2

REPORT INFORMATION
  Report Type: 
  Country: None (occurrence: None)
  Receive Date: 20100621
  Receipt Date: 20091208
  Transmission Date: 20101027
  Serious: No
  Sender: FDA-Public Use
  Company Number: US-AMGEN-KDL378919

PATIENT
  Sex: Female

DRUGS (7)
  1. ARANESP [Suspect]
     Indication: DRUG USE FOR UNKNOWN INDICATION
  2. CELLCEPT [Concomitant]
  3. LIPITOR [Concomitant]
  4. POTASSIUM [Concomitant]
  5. PREDNISONE [Concomitant]
  6. IRON [Concomitant]
  7. VITAMINS [Concomitant]

REACTIONS (2)
  - DIARRHOEA [None]
  - THERAPEUTIC RESPONSE DECREASED [None]
